FAERS Safety Report 4906771-X (Version None)
Quarter: 2006Q1

REPORT INFORMATION
  Report Type: 
  Country: None (occurrence: None)
  Receive Date: 20060207
  Receipt Date: 20060120
  Transmission Date: 20060701
  Serious: No
  Sender: FDA-Public Use
  Company Number: DE200601004637

PATIENT
  Age: 11 Year
  Sex: Male
  Weight: 45 kg

DRUGS (3)
  1. STRATTERA [Suspect]
     Indication: ATTENTION DEFICIT/HYPERACTIVITY DISORDER
     Dosage: 18 MG, DAILY (1/D), ORAL; 40 MG, DAILY (1/D), ORAL
     Route: 048
     Dates: start: 20050701
  2. STRATTERA [Suspect]
     Indication: ATTENTION DEFICIT/HYPERACTIVITY DISORDER
     Dosage: 18 MG, DAILY (1/D), ORAL; 40 MG, DAILY (1/D), ORAL
     Route: 048
     Dates: start: 20050801
  3. METHYLPHENIDATE HCL [Concomitant]

REACTIONS (1)
  - CIRCULATORY COLLAPSE [None]
